FAERS Safety Report 4880290-1 (Version None)
Quarter: 2006Q1

REPORT INFORMATION
  Report Type: 
  Country: None (occurrence: None)
  Receive Date: 20060113
  Receipt Date: 20060104
  Transmission Date: 20060701
  Serious: Yes (Other)
  Sender: FDA-Public Use
  Company Number: US-ROCHE-431459

PATIENT
  Age: 31 Year
  Sex: Female

DRUGS (2)
  1. ACCUTANE [Suspect]
     Dosage: DISCONTINUED AFTER 1-2 DOSES.
     Route: 048
  2. ACCUTANE [Suspect]
     Route: 048

REACTIONS (2)
  - FALL [None]
  - LIGAMENT INJURY [None]
